FAERS Safety Report 4565013-8 (Version None)
Quarter: 2005Q1

REPORT INFORMATION
  Report Type: 
  Country: None (occurrence: None)
  Receive Date: 20050131
  Receipt Date: 20050125
  Transmission Date: 20050727
  Serious: Yes (Other)
  Sender: FDA-Public Use
  Company Number: PHBS2005GR01375

PATIENT
  Age: 42 Year
  Sex: Female

DRUGS (1)
  1. TRILEPTAL [Suspect]
     Dosage: 600 MG, BID
     Route: 048

REACTIONS (2)
  - ATRIOVENTRICULAR BLOCK [None]
  - DISCOMFORT [None]
